FAERS Safety Report 15746491 (Version 1)
Quarter: 2018Q4

REPORT INFORMATION
  Report Type: Spontaneous
  Country: US (occurrence: US)
  Receive Date: 20181220
  Receipt Date: 20181220
  Transmission Date: 20190205
  Serious: Yes (Other)
  Sender: FDA-Public Use
  Company Number: US-CASPER PHARMA LLC-2018CAS000369

PATIENT
  Age: 30 Year
  Sex: Male

DRUGS (1)
  1. PENICILLIN G BENZATHINE [Suspect]
     Active Substance: PENICILLIN G BENZATHINE
     Indication: SYPHILIS
     Dosage: 2.4 MILLION INTERNATIONAL UNIT
     Route: 030

REACTIONS (1)
  - Jarisch-Herxheimer reaction [Unknown]
